FAERS Safety Report 8477174-9 (Version None)
Quarter: 2012Q2

REPORT INFORMATION
  Report Type: 
  Country: None (occurrence: None)
  Receive Date: 20120625
  Receipt Date: 20120625
  Transmission Date: 20120825
  Serious: Yes (Hospitalization, Other)
  Sender: FDA-Public Use
  Company Number: None

PATIENT
  Sex: Female
  Weight: 79.8331 kg

DRUGS (2)
  1. MELOXICAM (MOBIC) [Suspect]
     Indication: ARTHRITIS
     Dosage: 1 TWICE A DAY PO
     Route: 048
     Dates: start: 20111130, end: 20120612
  2. MELOXICAM (MOBIC) [Suspect]
     Indication: PAIN
     Dosage: 1 TWICE A DAY PO
     Route: 048
     Dates: start: 20111130, end: 20120612

REACTIONS (7)
  - LABILE BLOOD PRESSURE [None]
  - MIGRAINE [None]
  - VISION BLURRED [None]
  - DIZZINESS [None]
  - PARAESTHESIA [None]
  - HYPOAESTHESIA [None]
  - HEART RATE INCREASED [None]
